FAERS Safety Report 10074043 (Version 1)
Quarter: 2014Q2

REPORT INFORMATION
  Report Type: Spontaneous
  Country: US (occurrence: US)
  Receive Date: 20140411
  Receipt Date: 20140411
  Transmission Date: 20141212
  Serious: No
  Sender: FDA-Public Use
  Company Number: US-SA-2014SA002023

PATIENT
  Age: 62 Year
  Sex: Male

DRUGS (5)
  1. ALLEGRA D [Suspect]
     Indication: PULMONARY CONGESTION
     Route: 048
     Dates: start: 20140107
  2. ALLEGRA D [Suspect]
     Indication: CHEST PAIN
     Route: 048
     Dates: start: 20140107
  3. ASPIRIN [Concomitant]
  4. METFORMIN [Concomitant]
  5. ANTITHROMBOTIC AGENTS [Concomitant]

REACTIONS (2)
  - Insomnia [Unknown]
  - Drug ineffective for unapproved indication [Unknown]
